FAERS Safety Report 19765601 (Version 1)
Quarter: 2021Q3

REPORT INFORMATION
  Report Type: Report from Study
  Country: US (occurrence: US)
  Receive Date: 20210831
  Receipt Date: 20210831
  Transmission Date: 20211014
  Serious: Yes (Hospitalization)
  Sender: FDA-Public Use
  Company Number: US-BRISTOL-MYERS SQUIBB COMPANY-BMS-2021-085029

PATIENT
  Age: 73 Year
  Sex: Male
  Weight: 105.2 kg

DRUGS (5)
  1. 5?FLUOROURACIL [Suspect]
     Active Substance: FLUOROURACIL
     Indication: ADENOCARCINOMA PANCREAS
     Dosage: UNK
     Route: 065
     Dates: start: 20210719
  2. OXALIPLATIN. [Suspect]
     Active Substance: OXALIPLATIN
     Indication: ADENOCARCINOMA PANCREAS
     Dosage: UNK
     Route: 065
     Dates: start: 20210719
  3. IRINOTECAN HYDROCHLORIDE. [Suspect]
     Active Substance: IRINOTECAN HYDROCHLORIDE
     Indication: ADENOCARCINOMA PANCREAS
     Dosage: UNK
     Route: 065
     Dates: start: 20210719
  4. LEUCOVORIN CALCIUM. [Suspect]
     Active Substance: LEUCOVORIN CALCIUM
     Indication: ADENOCARCINOMA PANCREAS
     Dosage: UNK
     Route: 065
     Dates: start: 20210719
  5. NIVOLUMAB [Suspect]
     Active Substance: NIVOLUMAB
     Indication: ADENOCARCINOMA PANCREAS
     Dosage: UNK
     Route: 065
     Dates: start: 20210719

REACTIONS (2)
  - Nausea [Unknown]
  - Malnutrition [Unknown]

NARRATIVE: CASE EVENT DATE: 20210824
